FAERS Safety Report 6872005-2 (Version None)
Quarter: 2010Q3

REPORT INFORMATION
  Report Type: 
  Country: None (occurrence: None)
  Receive Date: 20100723
  Receipt Date: 20100713
  Transmission Date: 20110219
  Serious: Yes (Other)
  Sender: FDA-Public Use
  Company Number: BR-JNJFOC-20100704845

PATIENT
  Sex: Female
  Weight: 66.5 kg

DRUGS (4)
  1. REMICADE [Suspect]
     Indication: RHEUMATOID ARTHRITIS
     Route: 042
  2. ARCOXIA [Concomitant]
     Route: 048
  3. PRELONE [Concomitant]
     Route: 048
  4. METHOTREXATE [Concomitant]
     Route: 048

REACTIONS (4)
  - DYSPNOEA [None]
  - INFUSION RELATED REACTION [None]
  - RASH [None]
  - TACHYCARDIA [None]
